FAERS Safety Report 16391583 (Version 1)
Quarter: 2019Q2

REPORT INFORMATION
  Report Type: Spontaneous
  Country: CN (occurrence: CN)
  Receive Date: 20190605
  Receipt Date: 20190605
  Transmission Date: 20190711
  Serious: Yes (Hospitalization, Other)
  Sender: FDA-Public Use
  Company Number: CN-MACLEODS PHARMACEUTICALS US LTD-MAC2019021529

PATIENT

DRUGS (5)
  1. TOPIRAMATE. [Interacting]
     Active Substance: TOPIRAMATE
     Indication: BINGE EATING
     Dosage: 25 MILLIGRAM, QD
     Route: 065
  2. QUETIAPINE. [Interacting]
     Active Substance: QUETIAPINE
     Indication: DEPRESSION
     Dosage: UNK
     Route: 065
  3. TOPIRAMATE. [Interacting]
     Active Substance: TOPIRAMATE
     Dosage: 50 MILLIGRAM, QD, DOSE OF TOPIRAMATE WAS INCREASED TO 50 MG FOR FOUR DAYS
     Route: 065
  4. TOPIRAMATE. [Interacting]
     Active Substance: TOPIRAMATE
     Dosage: 75 MILLIGRAM, QD, 75MG PER DAY EVENTUALLY
     Route: 065
  5. QUETIAPINE. [Suspect]
     Active Substance: QUETIAPINE
     Indication: BIPOLAR II DISORDER
     Dosage: 300 MILLIGRAM, QD, GRADUALLY INCREASED TO A DOSE OF 300 MG PER NIGHT IN THE FIRST WEEK
     Route: 065

REACTIONS (2)
  - Drug interaction [Recovered/Resolved]
  - Mania [Recovered/Resolved]
